FAERS Safety Report 11142075 (Version 1)
Quarter: 2015Q2

REPORT INFORMATION
  Report Type: Spontaneous
  Country: US (occurrence: None)
  Receive Date: 20150526
  Receipt Date: 20150526
  Transmission Date: 20150821
  Serious: Yes (Other)
  Sender: FDA-Public Use
  Company Number: None

PATIENT
  Age: 46 Year
  Sex: Female
  Weight: 107.05 kg

DRUGS (4)
  1. OMEPRAZOLE MAGNESIUM 20.6 MG EQUATE [Suspect]
     Active Substance: OMEPRAZOLE MAGNESIUM
     Indication: DYSPEPSIA
     Dosage: 1 PILL
     Route: 048
     Dates: start: 20150521, end: 20150522
  2. ATORVASTATIN [Concomitant]
     Active Substance: ATORVASTATIN
  3. LISENOPRIL [Concomitant]
  4. FLUOXETINE [Concomitant]
     Active Substance: FLUOXETINE\FLUOXETINE HYDROCHLORIDE

REACTIONS (5)
  - Fatigue [None]
  - Product closure removal difficult [None]
  - Wrong drug administered [None]
  - Product packaging issue [None]
  - Somnolence [None]

NARRATIVE: CASE EVENT DATE: 20150521
